FAERS Safety Report 16023649 (Version 1)
Quarter: 2019Q1

REPORT INFORMATION
  Report Type: Spontaneous
  Country: PL (occurrence: PL)
  Receive Date: 20190301
  Receipt Date: 20190301
  Transmission Date: 20190418
  Serious: Yes (Other)
  Sender: FDA-Public Use
  Company Number: PL-MYLANLABS-2019M1016858

PATIENT
  Age: 7 Year
  Sex: Female

DRUGS (7)
  1. CASPOFUNGIN [Concomitant]
     Active Substance: CASPOFUNGIN
  2. VANCOMYCIN [Concomitant]
     Active Substance: VANCOMYCIN
  3. VORICONAZOLE. [Suspect]
     Active Substance: VORICONAZOLE
     Indication: FUNGAL INFECTION
     Dosage: UNK
  4. ISAVUCONAZOLE [Concomitant]
     Active Substance: ISAVUCONAZOLE
  5. CEFEPIME [Concomitant]
     Active Substance: CEFEPIME HYDROCHLORIDE
  6. AMPHOTERICINUM B [Concomitant]
     Active Substance: AMPHOTERICIN B
  7. POSACONAZOL [Concomitant]
     Active Substance: POSACONAZOLE

REACTIONS (1)
  - Drug ineffective [Unknown]
